FAERS Safety Report 19670233 (Version 1)
Quarter: 2021Q3

REPORT INFORMATION
  Report Type: Spontaneous
  Country: US (occurrence: US)
  Receive Date: 20210806
  Receipt Date: 20210806
  Transmission Date: 20211014
  Serious: Yes (Hospitalization, Other)
  Sender: FDA-Public Use
  Company Number: US-ELI_LILLY_AND_COMPANY-US202108001046

PATIENT
  Sex: Male

DRUGS (1)
  1. HUMALOG [Suspect]
     Active Substance: INSULIN LISPRO
     Indication: TYPE 2 DIABETES MELLITUS
     Dosage: 10 U, PRN
     Route: 058

REACTIONS (17)
  - Prostate cancer [Unknown]
  - Contusion [Not Recovered/Not Resolved]
  - Blood glucose increased [Unknown]
  - Hypoaesthesia [Unknown]
  - Thyroid cancer [Unknown]
  - Visual impairment [Not Recovered/Not Resolved]
  - Dyspnoea [Unknown]
  - Pain in extremity [Not Recovered/Not Resolved]
  - Myocardial infarction [Recovered/Resolved]
  - Testicular swelling [Not Recovered/Not Resolved]
  - Gastrointestinal disorder [Not Recovered/Not Resolved]
  - Peripheral swelling [Not Recovered/Not Resolved]
  - Drug hypersensitivity [Unknown]
  - Arterial occlusive disease [Recovered/Resolved]
  - Cardiac disorder [Unknown]
  - Rash [Not Recovered/Not Resolved]
  - Urinary incontinence [Not Recovered/Not Resolved]

NARRATIVE: CASE EVENT DATE: 2020
